FAERS Safety Report 10945621 (Version 1)
Quarter: 2015Q1

REPORT INFORMATION
  Report Type: Spontaneous
  Country: CH (occurrence: None)
  Receive Date: 20150319
  Receipt Date: 20150319
  Transmission Date: 20150721
  Serious: Yes (Hospitalization)
  Sender: FDA-Public Use
  Company Number: 2015089757

PATIENT
  Age: 87 Year
  Sex: Female
  Weight: 70 kg

DRUGS (7)
  1. FRAGMIN [Suspect]
     Active Substance: DALTEPARIN SODIUM
     Route: 058
     Dates: start: 20140701, end: 20140701
  2. CORDARONE [Suspect]
     Active Substance: AMIODARONE HYDROCHLORIDE
     Indication: ATRIAL FIBRILLATION
     Route: 048
     Dates: start: 20140701
  3. BELOC ZOK (METOPROLOL SUCCINATE) [Concomitant]
     Active Substance: METOPROLOL SUCCINATE
  4. HAWTHORN (CRATAEGUS) [Concomitant]
  5. XARELTO [Suspect]
     Active Substance: RIVAROXABAN
     Indication: ATRIAL FIBRILLATION
     Route: 048
     Dates: start: 20140702, end: 20140703
  6. TOREM (TORASEMIDE) [Concomitant]
     Active Substance: TORSEMIDE
  7. ARIXTRA [Suspect]
     Active Substance: FONDAPARINUX SODIUM
     Route: 058
     Dates: start: 20140630, end: 20140630

REACTIONS (4)
  - Drug interaction [None]
  - Abdominal wall haemorrhage [None]
  - Haemorrhagic anaemia [None]
  - Blood fibrinogen decreased [None]

NARRATIVE: CASE EVENT DATE: 2014
